FAERS Safety Report 8791962 (Version 1)
Quarter: 2012Q4

REPORT INFORMATION
  Report Type: 
  Country: NL (occurrence: NL)
  Receive Date: 20120918
  Receipt Date: 20120918
  Transmission Date: 20130627
  Serious: Yes (Hospitalization)
  Sender: FDA-Public Use
  Company Number: NL-PFIZER INC-2012225435

PATIENT
  Age: 58 Year
  Sex: Female

DRUGS (10)
  1. GENOTROPIN [Suspect]
     Dosage: 0.2 mg, 7/wk
     Route: 058
     Dates: start: 20040607
  2. PREMPAK /OLD FORM/ [Concomitant]
     Indication: BLOOD LUTEINISING HORMONE DECREASED
     Dosage: UNK
     Dates: start: 19830815
  3. PREMPAK /OLD FORM/ [Concomitant]
     Indication: BLOOD FOLLICLE STIMULATING HORMONE DECREASED
  4. PREMPAK /OLD FORM/ [Concomitant]
     Indication: HYPOGONADISM FEMALE
  5. CALCIUM-SANDOZ [Concomitant]
     Indication: OSTEOPOROSIS
     Dosage: UNK
     Dates: start: 19920815
  6. SEROXAT ^CIBA-GEIGY^ [Concomitant]
     Indication: DEPRESSION
     Dosage: UNK
     Dates: start: 19980415
  7. LEVOTHYROXINE [Concomitant]
     Indication: BLOOD THYROID STIMULATING HORMONE DECREASED
     Dosage: UNK
     Dates: start: 19830815
  8. NATRIUMCHLORIDE [Concomitant]
     Indication: BLOOD SODIUM DECREASED
     Dosage: UNK
     Dates: start: 20031215
  9. MINIRIN [Concomitant]
     Indication: BLOOD ANTIDIURETIC HORMONE DECREASED
     Dosage: UNK
     Dates: start: 19830815
  10. HYDROCORTISONE [Concomitant]
     Indication: HYPERADRENOCORTICISM
     Dosage: UNK
     Dates: start: 20070816

REACTIONS (2)
  - Loss of consciousness [Unknown]
  - Malaise [Unknown]
